FAERS Safety Report 10525081 (Version 10)
Quarter: 2015Q4

REPORT INFORMATION
  Report Type: Spontaneous
  Country: US (occurrence: US)
  Receive Date: 20141017
  Receipt Date: 20151229
  Transmission Date: 20160304
  Serious: Yes (Hospitalization, Other)
  Sender: FDA-Public Use
  Company Number: US-PFIZER INC-2014281586

PATIENT
  Age: 76 Year
  Sex: Female
  Weight: 79 kg

DRUGS (16)
  1. VITAMIN D [Concomitant]
     Active Substance: CHOLECALCIFEROL
     Dosage: 5000 MG, 1X/DAY (ONCE A DAY IN THE MORNING)
  2. STOOL SOFTENER [Concomitant]
     Active Substance: DOCUSATE CALCIUM
     Dosage: 200 MG, 2X/DAY (1 IN MORNING AND ONE IN EVENING)
  3. SUTENT [Suspect]
     Active Substance: SUNITINIB MALATE
     Dosage: UNK
  4. OMEPRAZOLE. [Concomitant]
     Active Substance: OMEPRAZOLE
     Indication: VOMITING
  5. SUTENT [Suspect]
     Active Substance: SUNITINIB MALATE
     Dosage: 25 MG, DAILY
     Dates: start: 20140930
  6. OMEPRAZOLE. [Concomitant]
     Active Substance: OMEPRAZOLE
     Indication: ABDOMINAL PAIN UPPER
     Dosage: 40 MG, UNK (IN THE EVENING)
     Dates: start: 201408
  7. GLIMEPINE [Concomitant]
     Dosage: 1 MG, UNK
     Dates: start: 201408
  8. GLIMEPIRIDE. [Concomitant]
     Active Substance: GLIMEPIRIDE
     Indication: DIABETES MELLITUS
     Dosage: 4 MG, 2X/DAY (IN MORNING AND IN EVENING)
  9. LOZARTEN [Concomitant]
     Dosage: 50 MG, 1X/DAY (IN MORNING)
  10. MYRBETRIQ [Concomitant]
     Active Substance: MIRABEGRON
     Indication: INCONTINENCE
     Dosage: 24 MG, 1X/DAY (IN THE MORNING)
     Dates: start: 2015
  11. VITAMIN B12 [Concomitant]
     Active Substance: CYANOCOBALAMIN
     Dosage: 1 SHOT ONCE A MONTH
  12. LOZARTEN [Concomitant]
     Indication: BLOOD PRESSURE ABNORMAL
     Dosage: 50 MG, UNK
     Dates: start: 201408
  13. LEVOTHYROXINE. [Concomitant]
     Active Substance: LEVOTHYROXINE
     Indication: THYROID DISORDER
     Dosage: 75 MG, UNK (AT NIGHT, SUNDAY NIGHTS SHE TAKES 1.5 PILLS)
  14. SUTENT [Suspect]
     Active Substance: SUNITINIB MALATE
     Indication: RENAL CANCER METASTATIC
     Dosage: 50 MG, DAILY
     Dates: start: 201408
  15. SUTENT [Suspect]
     Active Substance: SUNITINIB MALATE
     Dosage: 12.5 MG, CYCLIC (14 DAY ON AND 14 DAYS OFF)
     Dates: start: 2014
  16. TRAMADOL. [Concomitant]
     Active Substance: TRAMADOL
     Indication: PAIN
     Dosage: 50 MG, AS NEEDED
     Dates: start: 201408

REACTIONS (27)
  - Tremor [Unknown]
  - Glossodynia [Not Recovered/Not Resolved]
  - Muscle spasms [Recovered/Resolved]
  - Blister [Recovered/Resolved]
  - Lip pain [Not Recovered/Not Resolved]
  - Disease progression [Not Recovered/Not Resolved]
  - Weight decreased [Recovering/Resolving]
  - Activities of daily living impaired [Recovered/Resolved]
  - Stomatitis [Not Recovered/Not Resolved]
  - Mouth swelling [Recovered/Resolved]
  - Fatigue [Not Recovered/Not Resolved]
  - Swollen tongue [Recovered/Resolved]
  - Abdominal pain upper [Unknown]
  - Oral mucosal blistering [Not Recovered/Not Resolved]
  - Rash generalised [Recovered/Resolved]
  - Pain in extremity [Not Recovered/Not Resolved]
  - Oral disorder [Not Recovered/Not Resolved]
  - Palmar-plantar erythrodysaesthesia syndrome [Not Recovered/Not Resolved]
  - Malaise [Unknown]
  - Gait disturbance [Recovered/Resolved]
  - Tongue blistering [Not Recovered/Not Resolved]
  - Vomiting [Recovered/Resolved]
  - Diarrhoea [Recovered/Resolved]
  - Renal cancer metastatic [Not Recovered/Not Resolved]
  - Drug intolerance [Recovering/Resolving]
  - Fistula [Recovered/Resolved]
  - Amnesia [Not Recovered/Not Resolved]

NARRATIVE: CASE EVENT DATE: 2014
